FAERS Safety Report 9587552 (Version 2)
Quarter: 2013Q4

REPORT INFORMATION
  Report Type: Spontaneous
  Country: US (occurrence: US)
  Receive Date: 20131003
  Receipt Date: 20131219
  Transmission Date: 20140711
  Serious: No
  Sender: FDA-Public Use
  Company Number: US-BAYER-2013-119220

PATIENT
  Age: 28 Year
  Sex: Female

DRUGS (5)
  1. BETASERON [Suspect]
     Indication: MULTIPLE SCLEROSIS
     Dosage: 0.25 MG, QOD
     Route: 058
     Dates: start: 20110818, end: 20120717
  2. BETASERON [Suspect]
     Indication: MULTIPLE SCLEROSIS
     Dosage: UNK
     Dates: end: 201208
  3. BETASERON [Suspect]
     Indication: MULTIPLE SCLEROSIS
     Dosage: 0.25 MG, QOD
     Route: 058
     Dates: start: 20130802
  4. AMPYRA [Concomitant]
     Indication: GAIT DISTURBANCE
     Dosage: 10 MG, BID
     Route: 048
     Dates: start: 201110, end: 201208
  5. AMPYRA [Concomitant]
     Indication: GAIT DISTURBANCE
     Dosage: UNK
     Route: 048
     Dates: start: 2013

REACTIONS (3)
  - Injection site rash [None]
  - Injection site pruritus [None]
  - Maternal exposure before pregnancy [None]
